FAERS Safety Report 7285917-5 (Version None)
Quarter: 2011Q1

REPORT INFORMATION
  Report Type: 
  Country: None (occurrence: None)
  Receive Date: 20110210
  Receipt Date: 20110204
  Transmission Date: 20110831
  Serious: Yes (Hospitalization, Other)
  Sender: FDA-Public Use
  Company Number: US-MERCK-1011USA00027

PATIENT
  Age: 62 Year
  Sex: Female

DRUGS (8)
  1. ATIVAN [Concomitant]
     Indication: ANXIETY
     Route: 065
  2. FOSAMAX [Suspect]
     Indication: OSTEOPOROSIS
     Route: 048
     Dates: start: 19970101
  3. LEXAPRO [Concomitant]
     Indication: ANXIETY
     Route: 065
  4. DILANTIN [Concomitant]
     Indication: CONVULSION
     Route: 065
  5. PHENOBARBITAL [Concomitant]
     Route: 065
  6. CALCIUM (UNSPECIFIED) [Concomitant]
     Route: 065
  7. VITAMIN D (UNSPECIFIED) [Concomitant]
     Route: 065
  8. ATIVAN [Concomitant]
     Indication: CONVULSION
     Route: 065

REACTIONS (4)
  - FALL [None]
  - COMPLEX PARTIAL SEIZURES [None]
  - SYNCOPE [None]
  - BONE DENSITY DECREASED [None]
